FAERS Safety Report 6904052-6 (Version None)
Quarter: 2010Q3

REPORT INFORMATION
  Report Type: 
  Country: None (occurrence: None)
  Receive Date: 20100804
  Receipt Date: 20090306
  Transmission Date: 20110219
  Serious: No
  Sender: FDA-Public Use
  Company Number: US-PFIZER INC-2009184508

PATIENT
  Sex: Male
  Weight: 77.098 kg

DRUGS (16)
  1. LYRICA [Suspect]
     Indication: PARAESTHESIA
     Dosage: UNK
     Dates: start: 20080821
  2. LYRICA [Suspect]
     Indication: HYPOAESTHESIA
  3. NEURONTIN [Suspect]
     Dosage: UNK
     Dates: start: 20080101
  4. VANCOMYCIN [Concomitant]
     Dosage: UNK
     Route: 048
     Dates: start: 20080912
  5. VANCOMYCIN HCL [Concomitant]
     Dosage: 250 MG, UNK
  6. ALPRAZOLAM [Concomitant]
     Dosage: UNK
  7. LOPID [Concomitant]
  8. DIURIL [Concomitant]
     Dosage: UNK
     Route: 048
  9. MULTI-VITAMINS [Concomitant]
     Dosage: UNK
  10. GEMFIBROZIL [Concomitant]
  11. DILTIAZEM [Concomitant]
     Dosage: UNK
  12. CHLOROTHIAZIDE [Concomitant]
     Dosage: UNK
  13. DOXAZOSIN MESILATE [Concomitant]
     Dosage: UNK
  14. FLOMAX [Concomitant]
     Dosage: UNK
  15. CYCLOBENZAPRINE [Concomitant]
     Dosage: UNK
  16. HYOSCYAMINE [Concomitant]
     Dosage: UNK

REACTIONS (1)
  - DRUG INEFFECTIVE [None]
